FAERS Safety Report 10541374 (Version 1)
Quarter: 2014Q4

REPORT INFORMATION
  Report Type: Spontaneous
  Country: US (occurrence: None)
  Receive Date: 20141010
  Receipt Date: 20141010
  Transmission Date: 20150529
  Serious: No
  Sender: FDA-Public Use
  Company Number: 163-POMAL-14072237

PATIENT
  Age: 53 Year
  Sex: Female
  Weight: 104.3 kg

DRUGS (7)
  1. MULTIVITAMINS [Concomitant]
     Active Substance: VITAMINS
  2. VICODIN [Concomitant]
     Active Substance: ACETAMINOPHEN\HYDROCODONE BITARTRATE
  3. FENTANYL ( FENTANYL) [Concomitant]
  4. POMALYST [Suspect]
     Active Substance: POMALIDOMIDE
     Indication: PLASMA CELL MYELOMA
     Dosage: 4 MG, 21 IN 28 D, PO
     Route: 048
     Dates: start: 20140206
  5. ZOMETA [Concomitant]
     Active Substance: ZOLEDRONIC ACID
  6. ADVIL ( IBUPROFEN) [Concomitant]
  7. ECOTRIN ( ACETYLSALICYLIC ACID) [Concomitant]

REACTIONS (1)
  - Limb injury [None]

NARRATIVE: CASE EVENT DATE: 2014
